FAERS Safety Report 5121082-8 (Version None)
Quarter: 2006Q4

REPORT INFORMATION
  Report Type: 
  Country: None (occurrence: None)
  Receive Date: 20061002
  Receipt Date: 20060919
  Transmission Date: 20070319
  Serious: Yes (Hospitalization, Other)
  Sender: FDA-Public Use
  Company Number: 2006098029

PATIENT
  Sex: Male

DRUGS (6)
  1. CELEBREX [Suspect]
     Indication: OSTEOARTHRITIS
     Dosage: 200 MG (200 MG, 1 D), ORAL
     Route: 048
  2. AVAPRO HCT                     (HYDROCHLOROTHIAZIDE, IRBESARTAN) [Concomitant]
  3. ZANIDIP                 (LERCANIDIPINE HYDROCHLORIDE) [Concomitant]
  4. AVAPRO [Concomitant]
  5. DIABEX               (METFORMIN HYDROCHLORIDE) [Concomitant]
  6. DIAMICRON MR                  (GLICLAZIDE) [Concomitant]

REACTIONS (4)
  - ARRHYTHMIA [None]
  - ATRIAL FIBRILLATION [None]
  - DIZZINESS [None]
  - RENAL FAILURE CHRONIC [None]
